FAERS Safety Report 5052245-8 (Version None)
Quarter: 2006Q3

REPORT INFORMATION
  Report Type: 
  Country: None (occurrence: None)
  Receive Date: 20060717
  Receipt Date: 20060705
  Transmission Date: 20061208
  Serious: Yes (Other)
  Sender: FDA-Public Use
  Company Number: PHHO2006JP11073

PATIENT
  Age: 77 Year
  Sex: Female
  Weight: 47 kg

DRUGS (18)
  1. SANDOSTATIN LAR [Suspect]
     Indication: CARCINOID TUMOUR
     Dosage: 30MG EVERY 4 WEEKS
     Route: 030
     Dates: start: 20050827, end: 20060316
  2. SANDOSTATIN LAR [Suspect]
     Dosage: 20MG EVERY 4 WEEKS
     Route: 030
     Dates: start: 20050701, end: 20050729
  3. CISPLATIN [Concomitant]
  4. TS 1 [Concomitant]
  5. ADALAT [Concomitant]
  6. NU-LOTAN [Concomitant]
  7. NITRODERM [Concomitant]
  8. TINELAC [Concomitant]
  9. DEPAS [Concomitant]
  10. TAKEPRON [Concomitant]
  11. ASPIRIN [Concomitant]
  12. PLETAL [Concomitant]
  13. KREMEZIN [Concomitant]
  14. BONALON [Concomitant]
  15. ONEALFA [Concomitant]
  16. LASIX [Concomitant]
  17. ALDACTONE [Concomitant]
  18. ACTOS [Concomitant]

REACTIONS (3)
  - BILE DUCT STONE [None]
  - LEUKOPENIA [None]
  - PANCYTOPENIA [None]
